FAERS Safety Report 12419837 (Version 7)
Quarter: 2016Q4

REPORT INFORMATION
  Report Type: Report from Study
  Country: CN (occurrence: CN)
  Receive Date: 20160531
  Receipt Date: 20161102
  Transmission Date: 20170207
  Serious: Yes (Hospitalization)
  Sender: FDA-Public Use
  Company Number: CN-GLAXOSMITHKLINE-CN2016073784

PATIENT
  Age: 66 Year
  Sex: Male
  Weight: 80 kg

DRUGS (6)
  1. NOVOLIN R [Concomitant]
     Active Substance: INSULIN HUMAN
     Dosage: 12 UNIT, PC
     Route: 058
     Dates: start: 20160523
  2. RABEPRAZOLE SODIUM ENTERIC-COATED TABLETS [Concomitant]
     Indication: GASTRIC MUCOSAL LESION
     Dosage: 20 MG, QD
     Route: 048
     Dates: start: 20160523, end: 20160527
  3. UMECLIDINIUM BR+VILANTEROL TRIFENATATE [Suspect]
     Active Substance: UMECLIDINIUM BROMIDE\VILANTEROL TRIFENATATE
     Indication: CHRONIC OBSTRUCTIVE PULMONARY DISEASE
     Dosage: 1 PUFF(S), QD
     Route: 055
     Dates: start: 20160112, end: 20160522
  4. NOVOLIN R [Concomitant]
     Active Substance: INSULIN HUMAN
     Indication: BLOOD GLUCOSE ABNORMAL
     Dosage: 12 UNIT, AC
     Route: 058
     Dates: start: 20160523
  5. ADALAT [Concomitant]
     Active Substance: NIFEDIPINE
     Indication: BLOOD PRESSURE DECREASED
     Dosage: 30 MG, QD
     Route: 048
     Dates: start: 20160523, end: 20160531
  6. CALTRATE [Concomitant]
     Active Substance: CALCIUM CARBONATE
     Indication: MINERAL SUPPLEMENTATION
     Dosage: 600 MG, QD
     Route: 048
     Dates: start: 20160523, end: 20160527

REACTIONS (1)
  - Chronic obstructive pulmonary disease [Recovered/Resolved]

NARRATIVE: CASE EVENT DATE: 20160503
